FAERS Safety Report 20175497 (Version 9)
Quarter: 2023Q1

REPORT INFORMATION
  Report Type: Report from Study
  Country: DE (occurrence: DE)
  Receive Date: 20211213
  Receipt Date: 20230301
  Transmission Date: 20230418
  Serious: Yes (Hospitalization, Other)
  Sender: FDA-Public Use
  Company Number: DE-BRISTOL-MYERS SQUIBB COMPANY-BMS-2021-131778

PATIENT
  Age: 65 Year
  Sex: Male

DRUGS (11)
  1. OPDIVO [Suspect]
     Active Substance: NIVOLUMAB
     Indication: Renal cell carcinoma
     Dosage: 3 MILLIGRAM/KILOGRAM, Q3WK
     Route: 042
     Dates: start: 20210914, end: 20211026
  2. YERVOY [Suspect]
     Active Substance: IPILIMUMAB
     Indication: Renal cell carcinoma
     Dosage: 1 MILLIGRAM/KILOGRAM, Q3WK
     Route: 042
     Dates: start: 20210914, end: 20211026
  3. METOPROLOL [Concomitant]
     Active Substance: METOPROLOL
     Indication: Cardiovascular disorder
     Dates: start: 20210204
  4. CANDESARTAN [Concomitant]
     Active Substance: CANDESARTAN
     Indication: Cardiovascular disorder
     Dates: start: 20211202
  5. FELODIPINE [Concomitant]
     Active Substance: FELODIPINE
     Indication: Cardiovascular disorder
     Dates: start: 20211202, end: 20220201
  6. INNOHEP [Concomitant]
     Active Substance: TINZAPARIN SODIUM
     Indication: Prophylaxis
     Dosage: DOSE: 18000 IE/ML.
     Dates: start: 20220201
  7. LEVOTHYROXINE SODIUM [Concomitant]
     Active Substance: LEVOTHYROXINE SODIUM
     Indication: Product used for unknown indication
     Dates: start: 20220201
  8. LEVOTHYROXINE SODIUM [Concomitant]
     Active Substance: LEVOTHYROXINE SODIUM
     Dates: start: 20221206
  9. PANTOZOL [Concomitant]
     Active Substance: PANTOPRAZOLE SODIUM
     Indication: Prophylaxis
     Dates: start: 20211115
  10. METHIMAZOLE [Concomitant]
     Active Substance: METHIMAZOLE
     Indication: Product used for unknown indication
     Dosage: DOSE: 5MGX2
     Dates: start: 20210812, end: 20220111
  11. ACTRAPID [Concomitant]
     Active Substance: INSULIN HUMAN
     Indication: Adverse event
     Dates: start: 20211115

REACTIONS (7)
  - Renal failure [Recovered/Resolved]
  - Atrial fibrillation [Recovering/Resolving]
  - Disturbance in attention [Unknown]
  - Hyperthyroidism [Not Recovered/Not Resolved]
  - Hypophysitis [Not Recovered/Not Resolved]
  - Urinary tract infection [Recovered/Resolved]
  - Basedow^s disease [Unknown]

NARRATIVE: CASE EVENT DATE: 20210701
